FAERS Safety Report 9324549 (Version 3)
Quarter: 2014Q2

REPORT INFORMATION
  Report Type: Spontaneous
  Country: US (occurrence: US)
  Receive Date: 20130603
  Receipt Date: 20140409
  Transmission Date: 20141212
  Serious: Yes (Hospitalization, Other)
  Sender: FDA-Public Use
  Company Number: US-B.I. PHARMACEUTICALS,INC./RIDGEFIELD-2013-BI-15156BP

PATIENT
  Age: 71 Year
  Sex: Male
  Weight: 104 kg

DRUGS (8)
  1. PRADAXA [Suspect]
     Indication: ATRIAL FIBRILLATION
     Dosage: 300 MG
     Route: 048
     Dates: start: 201102, end: 20111024
  2. ALEVE [Suspect]
     Indication: PRODUCT USED FOR UNKNOWN INDICATION
     Route: 065
  3. ASPIRIN [Concomitant]
     Route: 065
  4. LASIX [Concomitant]
     Route: 065
  5. CITALOPRAM [Concomitant]
     Route: 065
  6. CARVEDILOL [Concomitant]
     Route: 065
  7. LEXAPRO [Concomitant]
     Indication: DEPRESSION
     Route: 065
  8. DRAMAMINE [Concomitant]
     Indication: DIZZINESS
     Route: 065

REACTIONS (7)
  - Upper gastrointestinal haemorrhage [Recovered/Resolved]
  - Haemorrhagic stroke [Unknown]
  - Haemorrhagic anaemia [Unknown]
  - Renal failure acute [Recovered/Resolved]
  - Intestinal infarction [Unknown]
  - Small intestinal obstruction [Unknown]
  - Gastrointestinal haemorrhage [Recovered/Resolved]
